FAERS Safety Report 15826849 (Version 12)
Quarter: 2024Q1

REPORT INFORMATION
  Report Type: Spontaneous
  Country: CA (occurrence: CA)
  Receive Date: 20190115
  Receipt Date: 20240124
  Transmission Date: 20240409
  Serious: Yes (Other)
  Sender: FDA-Public Use
  Company Number: CA-PFIZER INC-2018189979

PATIENT
  Age: 57 Year
  Sex: Female
  Weight: 72.8 kg

DRUGS (21)
  1. IBRANCE [Suspect]
     Active Substance: PALBOCICLIB
     Indication: Breast cancer metastatic
     Dosage: 125 MG, CYCLIC, 1X/DAY FOR 7 DAYS AND OFF FOR 14 DAYS
     Route: 048
     Dates: start: 20180514, end: 20180603
  2. IBRANCE [Suspect]
     Active Substance: PALBOCICLIB
     Dosage: 100 MG, CYCLIC, DAILY FOR 7 DAYS AND OFF FOR 14 DAYS
     Route: 048
     Dates: start: 20180620, end: 20181019
  3. IBRANCE [Suspect]
     Active Substance: PALBOCICLIB
     Dosage: UNK
     Route: 048
     Dates: end: 201904
  4. IBRANCE [Suspect]
     Active Substance: PALBOCICLIB
     Dosage: 100 MG, CYCLIC, DAILY FOR 21 DAYS ON 7 DAYS OFF
     Route: 048
  5. IBRANCE [Suspect]
     Active Substance: PALBOCICLIB
     Dosage: 100 MG, DAILY, DAILY FOR 21 DAYS
     Route: 048
     Dates: start: 20230629
  6. IBRANCE [Suspect]
     Active Substance: PALBOCICLIB
     Dosage: 100 MG, CYCLIC, ONCE DAILY FOR 21 DAYS ON, 7 DAYS OFF
     Route: 048
  7. BUPIVACAINE [Concomitant]
     Active Substance: BUPIVACAINE
     Dosage: UNK, EVERY 3 MONTHS
  8. CYCLOBENZAPRINE HYDROCHLORIDE [Concomitant]
     Active Substance: CYCLOBENZAPRINE HYDROCHLORIDE
     Dosage: UNK UNK, AS NEEDED
  9. FLUVASTATIN [Concomitant]
     Active Substance: FLUVASTATIN SODIUM
     Dosage: 4 MG
  10. FULVESTRANT [Concomitant]
     Active Substance: FULVESTRANT
     Dosage: UNK
  11. HYDROMORPHONE [Concomitant]
     Active Substance: HYDROMORPHONE
     Dosage: UNK UNK, AS NEEDED
  12. KETOROLAC [Concomitant]
     Active Substance: KETOROLAC TROMETHAMINE
     Dosage: UNK
  13. LETROZOLE [Concomitant]
     Active Substance: LETROZOLE
     Indication: Breast cancer
     Dosage: 25 MG
     Dates: start: 20180504, end: 20181026
  14. LETROZOLE [Concomitant]
     Active Substance: LETROZOLE
     Dosage: 25 MG
     Dates: start: 20181101
  15. LORAZEPAM [Concomitant]
     Active Substance: LORAZEPAM
     Dosage: 1 MG
  16. FERROUS FUMARATE [Concomitant]
     Active Substance: FERROUS FUMARATE
     Dosage: UNK UNK, AS NEEDED
  17. TAMOXIFEN [Concomitant]
     Active Substance: TAMOXIFEN
     Dosage: UNK
     Dates: start: 201012, end: 20180503
  18. TAMOXIFEN [Concomitant]
     Active Substance: TAMOXIFEN
     Dosage: UNK
  19. TYLENOL EXTRA STRENGTH [Concomitant]
     Active Substance: ACETAMINOPHEN
     Dosage: UNK
  20. VITAMIN C [Concomitant]
     Active Substance: ASCORBIC ACID
     Dosage: UNK
  21. VITAMIN D [Concomitant]
     Active Substance: VITAMIN D NOS
     Dosage: UNK

REACTIONS (19)
  - Haemorrhagic diathesis [Unknown]
  - Gastrooesophageal reflux disease [Recovering/Resolving]
  - Eye haemorrhage [Unknown]
  - Neutropenia [Unknown]
  - Malaise [Recovered/Resolved]
  - Therapeutic response unexpected [Unknown]
  - Gastrointestinal disorder [Recovered/Resolved]
  - Dyspepsia [Recovered/Resolved]
  - Paraesthesia oral [Unknown]
  - Arthralgia [Unknown]
  - Trigger finger [Unknown]
  - Haematoma [Unknown]
  - Back pain [Unknown]
  - Epistaxis [Unknown]
  - Furuncle [Unknown]
  - Fatigue [Recovering/Resolving]
  - Neoplasm progression [Unknown]
  - Diarrhoea [Recovered/Resolved]
  - Pyrexia [Recovering/Resolving]

NARRATIVE: CASE EVENT DATE: 20180101
